FAERS Safety Report 7483791-5 (Version None)
Quarter: 2011Q2

REPORT INFORMATION
  Report Type: 
  Country: None (occurrence: None)
  Receive Date: 20110517
  Receipt Date: 20110512
  Transmission Date: 20111010
  Serious: Yes (Death, Other)
  Sender: FDA-Public Use
  Company Number: PHHY2010MX55045

PATIENT
  Sex: Male

DRUGS (7)
  1. DIABON [Concomitant]
     Dosage: UNK
  2. OTHER UNSPECIFIED MEDICATIONS [Concomitant]
     Dosage: UNK
  3. NAPROXEN [Concomitant]
     Indication: PAIN
     Dosage: UNK
  4. ANTIBIOTICS [Concomitant]
     Dosage: UNK
  5. FUROSEMIDE [Concomitant]
     Dosage: UNK
  6. DIOVAN HCT [Suspect]
     Indication: HYPERTENSION
     Dosage: 1 TABLET (160/12.5 MG) DAILY
     Route: 048
     Dates: start: 20091101
  7. GLYBURIDE AND METFORMIN HCL [Concomitant]
     Dosage: UNK

REACTIONS (7)
  - MICTURITION URGENCY [None]
  - KIDNEY INFECTION [None]
  - URINE ODOUR ABNORMAL [None]
  - FLUID RETENTION [None]
  - PYREXIA [None]
  - RENAL FAILURE [None]
  - DYSURIA [None]
